FAERS Safety Report 10398312 (Version 2)
Quarter: 2015Q4

REPORT INFORMATION
  Report Type: Spontaneous
  Country: US (occurrence: US)
  Receive Date: 20140821
  Receipt Date: 20151218
  Transmission Date: 20160304
  Serious: Yes (Hospitalization, Other)
  Sender: FDA-Public Use
  Company Number: US-BAYER-2014-123436

PATIENT
  Age: 47 Year
  Sex: Female

DRUGS (4)
  1. HYDROCODONE W/IBUPROFEN [Concomitant]
     Active Substance: HYDROCODONE\HYDROCODONE BITARTRATE\IBUPROFEN
  2. ATIVAN [Concomitant]
     Active Substance: LORAZEPAM
  3. ADVIL [Concomitant]
     Active Substance: IBUPROFEN
     Indication: HEADACHE
     Dosage: UNK
     Dates: start: 2004
  4. YASMIN [Suspect]
     Active Substance: DROSPIRENONE\ETHINYL ESTRADIOL

REACTIONS (4)
  - Haemorrhagic stroke [None]
  - Ischaemic cerebral infarction [None]
  - Thrombophlebitis superficial [None]
  - Embolism arterial [None]

NARRATIVE: CASE EVENT DATE: 200409
